FAERS Safety Report 16786292 (Version 2)
Quarter: 2019Q4

REPORT INFORMATION
  Report Type: Spontaneous
  Country: US (occurrence: US)
  Receive Date: 20190909
  Receipt Date: 20191016
  Transmission Date: 20200122
  Serious: No
  Sender: FDA-Public Use
  Company Number: US-GILEAD-2019-0427219

PATIENT
  Age: 80 Year
  Sex: Male

DRUGS (1)
  1. RANEXA [Suspect]
     Active Substance: RANOLAZINE
     Indication: ANGINA PECTORIS
     Dosage: UNK UNK, BID
     Route: 048
     Dates: start: 201908

REACTIONS (1)
  - Dysphagia [Not Recovered/Not Resolved]
